FAERS Safety Report 6579417-5 (Version None)
Quarter: 2010Q1

REPORT INFORMATION
  Report Type: 
  Country: None (occurrence: None)
  Receive Date: 20100212
  Receipt Date: 20100201
  Transmission Date: 20100710
  Serious: Yes (Other)
  Sender: FDA-Public Use
  Company Number: US-BRISTOL-MYERS SQUIBB COMPANY-14972012

PATIENT
  Age: 26 Year
  Sex: Male

DRUGS (1)
  1. DASATINIB [Suspect]
     Indication: CHRONIC MYELOID LEUKAEMIA

REACTIONS (3)
  - GASTROINTESTINAL TOXICITY [None]
  - GRAFT VERSUS HOST DISEASE [None]
  - PLEURAL EFFUSION [None]
